FAERS Safety Report 7927203-3 (Version None)
Quarter: 2011Q4

REPORT INFORMATION
  Report Type: 
  Country: None (occurrence: None)
  Receive Date: 20111116
  Receipt Date: 20111101
  Transmission Date: 20120403
  Serious: Yes (Other)
  Sender: FDA-Public Use
  Company Number: FK201102613

PATIENT
  Sex: Female

DRUGS (2)
  1. CISPLATIN (CSPLATIN) (CISPLATIN) [Concomitant]
  2. FLUOROURACIL [Suspect]
     Indication: HODGKIN'S DISEASE
     Dosage: 1000 MG/M2, 1 IN 1 D
     Dates: start: 20090601

REACTIONS (29)
  - PUPILLARY LIGHT REFLEX TESTS ABNORMAL [None]
  - ENCEPHALOPATHY [None]
  - SOMNOLENCE [None]
  - SENSORY DISTURBANCE [None]
  - VISUAL ACUITY REDUCED [None]
  - VOMITING [None]
  - HALLUCINATION [None]
  - BONE MARROW FAILURE [None]
  - LACTIC ACIDOSIS [None]
  - VITAMIN B1 DEFICIENCY [None]
  - EYELID PTOSIS [None]
  - MUCOSAL INFLAMMATION [None]
  - OESOPHAGEAL STENOSIS [None]
  - DISTURBANCE IN ATTENTION [None]
  - ASCITES [None]
  - APALLIC SYNDROME [None]
  - DEPRESSED LEVEL OF CONSCIOUSNESS [None]
  - HYPOALBUMINAEMIA [None]
  - PERICARDIAL EFFUSION [None]
  - NERVE ROOT LESION [None]
  - PARAESTHESIA [None]
  - LIVER DISORDER [None]
  - PLEURAL EFFUSION [None]
  - MIOSIS [None]
  - HYPERBILIRUBINAEMIA [None]
  - OEDEMA PERIPHERAL [None]
  - ELECTROLYTE IMBALANCE [None]
  - COAGULOPATHY [None]
  - LARYNGITIS [None]
